FAERS Safety Report 19408879 (Version 2)
Quarter: 2021Q3

REPORT INFORMATION
  Report Type: Spontaneous
  Country: US (occurrence: US)
  Receive Date: 20210613
  Receipt Date: 20210913
  Transmission Date: 20211014
  Serious: No
  Sender: FDA-Public Use
  Company Number: US-SA-2021SA193515

PATIENT
  Age: 51 Year
  Sex: Male

DRUGS (6)
  1. IBUPROFEN. [Concomitant]
     Active Substance: IBUPROFEN
     Dosage: UNK
  2. DUPIXENT [Suspect]
     Active Substance: DUPILUMAB
     Indication: DERMATITIS ATOPIC
     Dosage: 300 MG, QOW
     Route: 058
     Dates: start: 20191220
  3. PREVACID [Concomitant]
     Active Substance: LANSOPRAZOLE
     Dosage: 200MG
  4. TYLENOL [Concomitant]
     Active Substance: ACETAMINOPHEN
     Dosage: UNK
  5. PREVACID [Concomitant]
     Active Substance: LANSOPRAZOLE
     Dosage: 15 MG
  6. ADVILGEL [Concomitant]
     Active Substance: IBUPROFEN
     Dosage: 15MG

REACTIONS (4)
  - Rash [Unknown]
  - Dermatitis atopic [Not Recovered/Not Resolved]
  - Pruritus [Unknown]
  - Discomfort [Not Recovered/Not Resolved]

NARRATIVE: CASE EVENT DATE: 202105
